FAERS Safety Report 22836327 (Version 10)
Quarter: 2024Q1

REPORT INFORMATION
  Report Type: Other
  Country: GB (occurrence: None)
  Receive Date: 20230818
  Receipt Date: 20240319
  Transmission Date: 20240409
  Serious: Yes (Hospitalization, Other)
  Sender: FDA-Public Use
  Company Number: GB-ROCHE-3382662

PATIENT
  Age: 64 Year
  Sex: Male
  Weight: 84.4 kg

DRUGS (27)
  1. ATEZOLIZUMAB [Suspect]
     Active Substance: ATEZOLIZUMAB
     Indication: Hepatocellular carcinoma
     Dosage: ON 17/MAY/2023, HE RECEIVED MOST RECENT DOSE OF STUDY DRUG PRIOR TO AE AND SAE WAS 1200 MG
     Route: 041
     Dates: start: 20230111
  2. BEVACIZUMAB [Suspect]
     Active Substance: BEVACIZUMAB
     Indication: Hepatocellular carcinoma
     Route: 065
     Dates: start: 20230111
  3. BUDESONIDE\FORMOTEROL [Concomitant]
     Active Substance: BUDESONIDE\FORMOTEROL
     Dosage: 200MCG+6MCG
     Dates: start: 1993
  4. ALBUTEROL [Concomitant]
     Active Substance: ALBUTEROL
     Dosage: 100MCG
     Dates: start: 1979, end: 20240307
  5. CARVEDILOL [Concomitant]
     Active Substance: CARVEDILOL
     Dates: start: 20211124, end: 20230617
  6. OMEPRAZOLE [Concomitant]
     Active Substance: OMEPRAZOLE
     Dates: start: 202204
  7. CANDESARTAN [Concomitant]
     Active Substance: CANDESARTAN
     Indication: Sepsis
     Dates: start: 20230118, end: 20230617
  8. CANDESARTAN [Concomitant]
     Active Substance: CANDESARTAN
     Dates: start: 20230705, end: 20240307
  9. HYDROCORTISONE [Concomitant]
     Active Substance: HYDROCORTISONE
     Dosage: 10MG AM, 5MG 12PM , 5MG 5PM
     Dates: start: 20230222, end: 20230617
  10. HYDROCORTISONE [Concomitant]
     Active Substance: HYDROCORTISONE
     Dosage: 10MG AM, 5MG 12PM, 5MG 5PM
     Dates: start: 20230701, end: 20230817
  11. HYDROCORTISONE [Concomitant]
     Active Substance: HYDROCORTISONE
     Dosage: 7.5MG PO AM, OD 5MG PO 12PM OD 5MG PO 5PM, OD
     Dates: start: 20231206, end: 20231219
  12. HYDROCORTISONE [Concomitant]
     Active Substance: HYDROCORTISONE
     Dates: start: 20230617, end: 20230625
  13. HYDROCORTISONE [Concomitant]
     Active Substance: HYDROCORTISONE
     Dosage: 20MG PO AM OD, 10MG PO 12PM OD, 10MG PO OD
     Dates: start: 20230626, end: 20230630
  14. HYDROCORTISONE [Concomitant]
     Active Substance: HYDROCORTISONE
     Dosage: 10MG PO AM, OD 5MG PO 12PM, OD 5MG PO 5PM, OD
     Dates: start: 20231220, end: 20240102
  15. HYDROCORTISONE [Concomitant]
     Active Substance: HYDROCORTISONE
     Dosage: 7.5MG PO AM OD, 5MG PO 12PM OD, 5MG PO 5PM
     Dates: start: 20240103, end: 20240117
  16. HYDROCORTISONE [Concomitant]
     Active Substance: HYDROCORTISONE
     Dosage: 10MG AM, 5MG 12PM , 5MG 5PM
     Dates: start: 20230827, end: 20231205
  17. HYDROCORTISONE [Concomitant]
     Active Substance: HYDROCORTISONE
     Dosage: 20MG OD AM PO, 10MG 12PM PO, 10MG PO OD
     Dates: start: 20230818, end: 20231205
  18. RENAPRO [Concomitant]
     Dates: start: 202211, end: 20240307
  19. MOMETASONE [Concomitant]
     Active Substance: MOMETASONE
     Dates: start: 20231220
  20. DALTEPARIN [Concomitant]
     Active Substance: DALTEPARIN
     Dosage: 18000 UNIT
     Dates: start: 20231219
  21. DOXYCYCLINE [Concomitant]
     Active Substance: DOXYCYCLINE
     Dates: start: 20231220, end: 20231225
  22. SODIUM PHOSPHATE [Concomitant]
     Active Substance: SODIUM PHOSPHATE
     Dates: start: 20240102, end: 20240105
  23. PREDNISOLONE [Concomitant]
     Active Substance: PREDNISOLONE
     Dates: start: 20240118, end: 20240123
  24. PREDNISOLONE [Concomitant]
     Active Substance: PREDNISOLONE
     Dates: start: 20240124, end: 20240206
  25. PREDNISOLONE [Concomitant]
     Active Substance: PREDNISOLONE
     Dates: start: 20240207
  26. CLARITHROMYCIN [Concomitant]
     Active Substance: CLARITHROMYCIN
     Dates: start: 20240227, end: 20240304
  27. AMOXICILLIN\CLAVULANATE POTASSIUM [Concomitant]
     Active Substance: AMOXICILLIN\CLAVULANATE POTASSIUM
     Dates: start: 20240228, end: 20240306

REACTIONS (3)
  - Sepsis [Recovered/Resolved]
  - Acute kidney injury [Recovered/Resolved]
  - Oedema [Not Recovered/Not Resolved]

NARRATIVE: CASE EVENT DATE: 20230617
